FAERS Safety Report 14346213 (Version 1)
Quarter: 2018Q1

REPORT INFORMATION
  Report Type: Spontaneous
  Country: JP (occurrence: JP)
  Receive Date: 20180103
  Receipt Date: 20180103
  Transmission Date: 20180509
  Serious: Yes (Other)
  Sender: FDA-Public Use
  Company Number: JP-PFIZER INC-2018000767

PATIENT
  Age: 12 Year
  Sex: Male

DRUGS (1)
  1. MEROPEN [Suspect]
     Active Substance: MEROPENEM
     Dosage: UNK
     Route: 041

REACTIONS (4)
  - Pyrexia [Unknown]
  - Clostridium difficile colitis [Unknown]
  - C-reactive protein increased [Unknown]
  - Neutropenic colitis [Unknown]
